FAERS Safety Report 21843038 (Version 1)
Quarter: 2023Q1

REPORT INFORMATION
  Report Type: Spontaneous
  Country: US (occurrence: None)
  Receive Date: 20230109
  Receipt Date: 20230109
  Transmission Date: 20230418
  Serious: Yes (Life-Threatening, Hospitalization, Disabling)
  Sender: FDA-Public Use
  Company Number: None

PATIENT
  Age: 23 Year
  Sex: Female
  Weight: 88.4 kg

DRUGS (12)
  1. BELZUTIFAN [Suspect]
     Active Substance: BELZUTIFAN
     Indication: Von Hippel-Lindau disease
     Dosage: FREQUENCY : DAILY;?
     Route: 048
     Dates: start: 20220809, end: 20221126
  2. BELZUTIFAN [Suspect]
     Active Substance: BELZUTIFAN
     Indication: Renal cell carcinoma
  3. ALBUTEROL [Concomitant]
     Active Substance: ALBUTEROL
  4. APIXABAN [Concomitant]
     Active Substance: APIXABAN
     Dates: start: 20220930
  5. CETIRIZINE [Concomitant]
     Active Substance: CETIRIZINE HYDROCHLORIDE
  6. GABAPENTIN [Concomitant]
     Active Substance: GABAPENTIN
  7. RANITIDINE [Concomitant]
     Active Substance: RANITIDINE
  8. SERTRALINE [Concomitant]
     Active Substance: SERTRALINE HYDROCHLORIDE
  9. TIZANIDINE [Concomitant]
     Active Substance: TIZANIDINE
  10. OXYCODONE [Concomitant]
     Active Substance: OXYCODONE
  11. ETHINYL ESTRADIOL\NORGESTIMATE [Concomitant]
     Active Substance: ETHINYL ESTRADIOL\NORGESTIMATE
  12. ONDANSETRON [Concomitant]
     Active Substance: ONDANSETRON

REACTIONS (6)
  - Acute hepatic failure [None]
  - International normalised ratio increased [None]
  - Therapy interrupted [None]
  - Hepatitis cholestatic [None]
  - Hepatic necrosis [None]
  - Pulmonary embolism [None]

NARRATIVE: CASE EVENT DATE: 20221126
